FAERS Safety Report 15406267 (Version 1)
Quarter: 2018Q3

REPORT INFORMATION
  Report Type: Spontaneous
  Country: US (occurrence: US)
  Receive Date: 20180918
  Receipt Date: 20180918
  Transmission Date: 20181010
  Serious: Yes (Other)
  Sender: FDA-Public Use
  Company Number: None

PATIENT
  Age: 71 Year
  Sex: Male

DRUGS (7)
  1. TASIGNA [Suspect]
     Active Substance: NILOTINIB
     Indication: CHRONIC MYELOID LEUKAEMIA
     Route: 048
  2. PHENAZOPYRIDINE. [Concomitant]
     Active Substance: PHENAZOPYRIDINE
  3. WARFARIN [Concomitant]
     Active Substance: WARFARIN
  4. CLINDAMYCIN. [Concomitant]
     Active Substance: CLINDAMYCIN
  5. TAMSULOSIN [Concomitant]
     Active Substance: TAMSULOSIN
  6. DOXYCYCLINE. [Concomitant]
     Active Substance: DOXYCYCLINE
  7. FUROSEMIDE. [Concomitant]
     Active Substance: FUROSEMIDE

REACTIONS (1)
  - Urinary retention [None]

NARRATIVE: CASE EVENT DATE: 20180914
